FAERS Safety Report 7521722-X (Version None)
Quarter: 2011Q2

REPORT INFORMATION
  Report Type: 
  Country: None (occurrence: None)
  Receive Date: 20110603
  Receipt Date: 20101227
  Transmission Date: 20111010
  Serious: Yes (Hospitalization, Other)
  Sender: FDA-Public Use
  Company Number: US-BAYER-201034429NA

PATIENT
  Age: 40 Year
  Sex: Female
  Weight: 58.05 kg

DRUGS (4)
  1. YASMIN [Suspect]
     Dosage: UNK UNK, UNK
     Route: 048
     Dates: start: 20080201, end: 20080801
  2. ESTRADIOL [Concomitant]
     Dosage: UNK
     Dates: start: 20080901, end: 20081001
  3. PROGESTERONE [Concomitant]
     Dosage: UNK
     Dates: start: 20080901, end: 20081001
  4. FERROUS SULFATE TAB [Concomitant]

REACTIONS (2)
  - PULMONARY EMBOLISM [None]
  - DEEP VEIN THROMBOSIS [None]
